FAERS Safety Report 9654380 (Version 1)
Quarter: 2013Q4

REPORT INFORMATION
  Report Type: Spontaneous
  Country: VE (occurrence: VE)
  Receive Date: 20131029
  Receipt Date: 20131029
  Transmission Date: 20140711
  Serious: Yes (Other)
  Sender: FDA-Public Use
  Company Number: VE-ROCHE-1295330

PATIENT
  Sex: 0

DRUGS (1)
  1. LUCENTIS [Suspect]
     Indication: RETINOPATHY OF PREMATURITY
     Route: 050

REACTIONS (2)
  - Respiratory tract infection [Unknown]
  - Off label use [Unknown]
